FAERS Safety Report 6327178-7 (Version None)
Quarter: 2009Q3

REPORT INFORMATION
  Report Type: 
  Country: None (occurrence: None)
  Receive Date: 20090825
  Receipt Date: 20090807
  Transmission Date: 20100115
  Serious: Yes (Other)
  Sender: FDA-Public Use
  Company Number: NL-JNJFOC-20090807027

PATIENT
  Age: 7 Year
  Sex: Male

DRUGS (6)
  1. DAKTARIN [Suspect]
     Route: 061
  2. DAKTARIN [Suspect]
     Indication: FUNGAL INFECTION
     Route: 061
  3. CLOBAZAM [Interacting]
     Indication: EPILEPSY
     Route: 065
  4. LEVETIRACETAM [Concomitant]
     Route: 065
  5. MOVICOLON [Concomitant]
     Route: 065
  6. CARBAMAZEPINE [Concomitant]
     Route: 065

REACTIONS (2)
  - DRUG INTERACTION [None]
  - DRUG TOXICITY [None]
